FAERS Safety Report 9747200 (Version 2)
Quarter: 2015Q2

REPORT INFORMATION
  Report Type: Report from Study
  Country: US (occurrence: US)
  Receive Date: 20131212
  Receipt Date: 20150401
  Transmission Date: 20150821
  Serious: Yes (Death)
  Sender: FDA-Public Use
  Company Number: US-ROCHE-1317321

PATIENT
  Sex: Male

DRUGS (14)
  1. ARANESP [Concomitant]
     Active Substance: DARBEPOETIN ALFA
     Route: 058
  2. ATIVAN [Concomitant]
     Active Substance: LORAZEPAM
     Dosage: 23/DEC/2011
     Route: 042
  3. ALOXI [Concomitant]
     Active Substance: PALONOSETRON HYDROCHLORIDE
     Dosage: 26/MAR/2012, 02/MAR/2012, 20/JAN/2012, 23/DEC/2011
     Route: 042
     Dates: start: 20111202
  4. AVASTIN [Suspect]
     Active Substance: BEVACIZUMAB
     Indication: LUNG NEOPLASM MALIGNANT
     Dosage: 26/MAR/2012, 02/MAR/2012, 20/JAN/2012, 23/DEC/2011
     Route: 042
     Dates: start: 20111202
  5. SOLU-MEDROL [Concomitant]
     Active Substance: METHYLPREDNISOLONE SODIUM SUCCINATE
     Route: 040
     Dates: start: 20111202, end: 20111202
  6. CISPLATIN. [Concomitant]
     Active Substance: CISPLATIN
     Dosage: 26/MAR/2012, 02/MAR/2012, 20/JAN/2012, 23/DEC/2011
     Route: 042
  7. EMEND [Concomitant]
     Active Substance: APREPITANT
     Dosage: 26/MAR/2012, 20/JAN/2012
     Route: 065
  8. BENADRYL [Concomitant]
     Active Substance: DIPHENHYDRAMINE HYDROCHLORIDE
     Dosage: 26/MAR/2012, 02/MAR/2012
     Route: 042
     Dates: start: 20111202
  9. ALIMTA [Concomitant]
     Active Substance: PEMETREXED DISODIUM
     Dosage: 26/MAR/2012, 02/MAR/2012, 20/JAN/2012, 23/DEC/2011
     Route: 042
     Dates: start: 20111202
  10. DECADRON [Concomitant]
     Active Substance: DEXAMETHASONE
     Dosage: 26/MAR/2012, 02/MAR/2012, 23/DEC/2011
     Route: 042
     Dates: start: 20111202
  11. TYLENOL [Concomitant]
     Active Substance: ACETAMINOPHEN
     Dosage: 02/MAR/2012, 26/MAR/2012
     Route: 065
  12. VITAMIN B12 [Concomitant]
     Active Substance: CYANOCOBALAMIN
     Route: 065
  13. AVASTIN [Suspect]
     Active Substance: BEVACIZUMAB
     Indication: LUNG DISORDER
  14. CARBOPLATIN. [Concomitant]
     Active Substance: CARBOPLATIN
     Route: 042
     Dates: start: 20111202, end: 20111202

REACTIONS (3)
  - Rash erythematous [Unknown]
  - Death [Fatal]
  - Pruritus [Unknown]
